FAERS Safety Report 7590158-8 (Version None)
Quarter: 2011Q3

REPORT INFORMATION
  Report Type: 
  Country: None (occurrence: None)
  Receive Date: 20110705
  Receipt Date: 20110630
  Transmission Date: 20111222
  Serious: Yes (Other)
  Sender: FDA-Public Use
  Company Number: D0071883A

PATIENT
  Age: 26 Year
  Sex: Female

DRUGS (4)
  1. FLUOXETINE HCL [Suspect]
     Dosage: 760MG SINGLE DOSE
     Route: 048
     Dates: start: 20110629, end: 20110629
  2. AMOXICILLIN [Suspect]
     Dosage: 20000MG SINGLE DOSE
     Route: 048
     Dates: start: 20110629, end: 20110629
  3. ABILIFY [Suspect]
     Route: 048
     Dates: start: 20110629, end: 20110629
  4. LAMICTAL [Suspect]
     Dosage: 1400MG SINGLE DOSE
     Route: 048
     Dates: start: 20110629, end: 20110629

REACTIONS (4)
  - INTENTIONAL OVERDOSE [None]
  - SUICIDE ATTEMPT [None]
  - TACHYCARDIA [None]
  - SOMNOLENCE [None]
